FAERS Safety Report 5252567-1 (Version None)
Quarter: 2007Q1

REPORT INFORMATION
  Report Type: 
  Country: None (occurrence: None)
  Receive Date: 20070227
  Receipt Date: 20070213
  Transmission Date: 20070707
  Serious: Yes (Other)
  Sender: FDA-Public Use
  Company Number: T200700211

PATIENT
  Age: 57 Year
  Sex: Male

DRUGS (4)
  1. TOFRANIL-PM [Suspect]
     Indication: PAIN
  2. MORPHINE [Suspect]
     Indication: PAIN
     Dosage: ORAL
     Route: 048
  3. PROCHLORPERAZINE MALEATE [Suspect]
     Indication: PAIN
  4. NSAID'S [Concomitant]

REACTIONS (5)
  - HALLUCINATION [None]
  - INSOMNIA [None]
  - LABILE BLOOD PRESSURE [None]
  - NEUROLEPTIC MALIGNANT SYNDROME [None]
  - RHABDOMYOLYSIS [None]
